FAERS Safety Report 8557838-9 (Version None)
Quarter: 2012Q3

REPORT INFORMATION
  Report Type: 
  Country: None (occurrence: None)
  Receive Date: 20120801
  Receipt Date: 20120724
  Transmission Date: 20120928
  Serious: Yes (Disabling, Other)
  Sender: FDA-Public Use
  Company Number: US-GLAXOSMITHKLINE-A0986566A

PATIENT
  Age: 22 Year
  Sex: Female

DRUGS (3)
  1. AUGMENTIN '500' [Suspect]
     Indication: LOCALISED INFECTION
     Dosage: 250MG TWICE PER DAY
     Route: 048
     Dates: start: 20120616, end: 20120617
  2. LAMICTAL [Suspect]
     Indication: CONVULSION
     Dosage: 700MG PER DAY
     Route: 048
     Dates: start: 20120201
  3. LAMICTAL [Suspect]
     Dosage: 300MG TWICE PER DAY
     Route: 048

REACTIONS (5)
  - GAIT DISTURBANCE [None]
  - MALAISE [None]
  - GRAND MAL CONVULSION [None]
  - DIZZINESS [None]
  - DRUG LEVEL DECREASED [None]
